FAERS Safety Report 13112098 (Version 8)
Quarter: 2018Q1

REPORT INFORMATION
  Report Type: Spontaneous
  Country: US (occurrence: US)
  Receive Date: 20170113
  Receipt Date: 20180124
  Transmission Date: 20180508
  Serious: Yes (Hospitalization, Congenital Anomaly, Other)
  Sender: FDA-Public Use
  Company Number: US-ACCORD-047446

PATIENT
  Age: 0 Day
  Sex: Male
  Weight: 1.94 kg

DRUGS (8)
  1. PREDNISONE. [Concomitant]
     Active Substance: PREDNISONE
     Dosage: GESTATION AGE AT FIRST AND LAST EXPOSURE 33 WKS, 2 DAYS, LAST DOSE ON 01-DEC-2016
     Dates: start: 201507
  2. AZATHIOPRINE. [Concomitant]
     Active Substance: AZATHIOPRINE
     Indication: SYSTEMIC LUPUS ERYTHEMATOSUS
     Dosage: GESTATION AGE AT LAST EXPOS. 34 WKS,?RECEIVED 150 MG DAILY ON 02-JUN-2016
     Dates: start: 20160112
  3. CELLCEPT [Suspect]
     Active Substance: MYCOPHENOLATE MOFETIL\MYCOPHENOLATE MOFETIL HYDROCHLORIDE
     Indication: LUPUS NEPHRITIS
  4. ASCORBIC ACID/BIOTIN/MINERALS NOS/NICOTINIC ACID/RETINOL/TOCOPHEROL/VITAMIN B NOS/VITAMIN D NOS [Concomitant]
     Indication: PREGNANCY
     Dosage: 1 TAB
     Dates: start: 201605
  5. CANNABIS SATIVA [Concomitant]
     Active Substance: CANNABIS SATIVA SUBSP. SATIVA FLOWERING TOP
     Dosage: USE DAILY PATIENT PREFERENCE. ILLICIT DRUG
  6. DOXYLAMINE/PYRIDOXINE [Concomitant]
     Indication: NAUSEA
     Dosage: 10 MG/10 MG, 2 TABS IN EVENING
     Dates: start: 20160602, end: 2016
  7. MYCOPHENOLATE MOFETIL ACCORD [Suspect]
     Active Substance: MYCOPHENOLATE MOFETIL
     Indication: LUPUS NEPHRITIS
     Route: 048
     Dates: start: 20150720, end: 20160506
  8. HYDROXYCHLOROQUINE [Concomitant]
     Active Substance: HYDROXYCHLOROQUINE
     Dosage: LAST DOSE RECEIVED IN 2016.?GESTATION AGE AT EXPOSURE: 34 WEEKS AND EXPOSED IN 1ST, 2ND AND 3RD TRI
     Dates: start: 201507, end: 2016

REACTIONS (9)
  - Foetal exposure during pregnancy [Unknown]
  - Adrenogenital syndrome [Unknown]
  - Brachydactyly [Unknown]
  - Premature baby [Unknown]
  - Iron deficiency anaemia [Unknown]
  - Left ventricular dilatation [Unknown]
  - Dysmorphism [Not Recovered/Not Resolved]
  - Communication disorder [Unknown]
  - Left ventricular hypertrophy [Not Recovered/Not Resolved]

NARRATIVE: CASE EVENT DATE: 20161212
